FAERS Safety Report 19487857 (Version 1)
Quarter: 2021Q3

REPORT INFORMATION
  Report Type: Spontaneous
  Country: US (occurrence: US)
  Receive Date: 20210702
  Receipt Date: 20210702
  Transmission Date: 20211014
  Serious: No
  Sender: FDA-Public Use
  Company Number: US-ORGANON-O2106USA001971

PATIENT
  Sex: Male

DRUGS (11)
  1. KENALOG [Concomitant]
     Active Substance: TRIAMCINOLONE ACETONIDE
  2. PRINIVIL [Concomitant]
     Active Substance: LISINOPRIL
  3. XOLAIR [Concomitant]
     Active Substance: OMALIZUMAB
  4. SINGULAIR [Suspect]
     Active Substance: MONTELUKAST SODIUM
     Indication: ASTHMA
     Dosage: UNK
  5. CLARITIN ALLERGIC [Concomitant]
     Active Substance: OXYMETAZOLINE HYDROCHLORIDE
  6. SYMBICORT [Concomitant]
     Active Substance: BUDESONIDE\FORMOTEROL FUMARATE DIHYDRATE
  7. ZESTRIL [Concomitant]
     Active Substance: LISINOPRIL
  8. MICROZIDE [GLICLAZIDE] [Concomitant]
  9. XOLAIR [Concomitant]
     Active Substance: OMALIZUMAB
  10. VENTOLIN HFA [Concomitant]
     Active Substance: ALBUTEROL SULFATE
  11. KLONOPIN [Concomitant]
     Active Substance: CLONAZEPAM

REACTIONS (1)
  - Mood swings [Unknown]
